FAERS Safety Report 6617496-7 (Version None)
Quarter: 2010Q1

REPORT INFORMATION
  Report Type: 
  Country: None (occurrence: None)
  Receive Date: 20100302
  Receipt Date: 20100216
  Transmission Date: 20100710
  Serious: Yes (Hospitalization, Other)
  Sender: FDA-Public Use
  Company Number: 20100078

PATIENT
  Age: 53 Year
  Sex: Male

DRUGS (2)
  1. EPINEPHRINE [Suspect]
     Indication: NERVE BLOCK
     Dosage: 2- 20 ML INJ.; 1-10 ML INJ. INJECTION NOS
  2. ROPIVACAINE W/ CLONIDINE 0.5%/0.00015% [Suspect]
     Indication: NERVE BLOCK
     Dosage: 2- 20 ML INJ.; 1-10 ML INJ. INJECTION NOS

REACTIONS (3)
  - DISCOMFORT [None]
  - MYALGIA [None]
  - PNEUMOTHORAX [None]
